FAERS Safety Report 5409620-9 (Version None)
Quarter: 2007Q3

REPORT INFORMATION
  Report Type: 
  Country: None (occurrence: None)
  Receive Date: 20070809
  Receipt Date: 20070730
  Transmission Date: 20080115
  Serious: Yes (Other)
  Sender: FDA-Public Use
  Company Number: BR-ELI_LILLY_AND_COMPANY-BR200701000137

PATIENT
  Age: 77 Year
  Sex: Female
  Weight: 50 kg

DRUGS (4)
  1. FORTEO [Suspect]
     Indication: OSTEOPOROSIS
     Dosage: 20 UG, DAILY (1/D)
     Route: 058
     Dates: start: 20061101, end: 20070501
  2. ENOXAPARIN SODIUM [Concomitant]
     Dosage: 40 MG, DAILY (1/D)
     Route: 058
  3. EPHYNAL [Concomitant]
     Dosage: 400 MG, 2/D
     Route: 048
  4. CAPILAREMA [Concomitant]
     Indication: ANTIINFLAMMATORY THERAPY
     Dosage: 75 MG, 2/D
     Route: 048

REACTIONS (1)
  - FEMUR FRACTURE [None]
